FAERS Safety Report 4542377-2 (Version None)
Quarter: 2004Q4

REPORT INFORMATION
  Report Type: 
  Country: None (occurrence: None)
  Receive Date: 20041229
  Receipt Date: 20041216
  Transmission Date: 20050328
  Serious: Yes (Other)
  Sender: FDA-Public Use
  Company Number: A-US2003-03906

PATIENT
  Age: 71 Year
  Sex: Female

DRUGS (17)
  1. TRACLEER [Suspect]
     Indication: PULMONARY HYPERTENSION
     Dosage: 125 MG, BID, ORAL
     Route: 048
     Dates: start: 20030804, end: 20031109
  2. TRACLEER [Suspect]
     Indication: PULMONARY HYPERTENSION
     Dosage: 125 MG, BID, ORAL
     Route: 048
     Dates: start: 20031110, end: 20031215
  3. TRACLEER [Suspect]
     Indication: PULMONARY HYPERTENSION
     Dosage: 125 MG, BID, ORAL
     Route: 048
     Dates: start: 20031216, end: 20040202
  4. TRACLEER [Suspect]
     Indication: PULMONARY HYPERTENSION
     Dosage: 125 MG, BID, ORAL
     Route: 048
     Dates: start: 20040203, end: 20041011
  5. TRACLEER [Suspect]
     Indication: PULMONARY HYPERTENSION
     Dosage: 125 MG, BID, ORAL
     Route: 048
     Dates: start: 20041012
  6. LOSEC (OMEPRAZOLE) [Concomitant]
  7. VIOXX [Concomitant]
  8. PREMARIN [Concomitant]
  9. VITAMIN E [Concomitant]
  10. IRON (IRON) [Concomitant]
  11. MULTIVITAMINS (ASCORBIC ACID, FOLIC ACID, ERGOCALCIFEROL, NICOTINAMIDE [Concomitant]
  12. CALCIUM (CALCIUM) [Concomitant]
  13. FLAX SEED OIL [Concomitant]
  14. BIOTEARS [Concomitant]
  15. CEPHALEXIN [Concomitant]
  16. OXYGEN (OXYGEN) [Concomitant]
  17. PRILOSEC [Concomitant]

REACTIONS (4)
  - AUTOIMMUNE HEPATITIS [None]
  - DYSPNOEA [None]
  - FATIGUE [None]
  - HEPATITIS [None]
